FAERS Safety Report 25745469 (Version 2)
Quarter: 2025Q4

REPORT INFORMATION
  Report Type: Spontaneous
  Country: EU (occurrence: EU)
  Receive Date: 20250901
  Receipt Date: 20251120
  Transmission Date: 20260118
  Serious: Yes (Hospitalization)
  Sender: AUROBINDO
  Company Number: EU-ASTRAZENECA-202504GLO026634DE

PATIENT
  Age: 73 Year
  Sex: Male
  Weight: 78 kg

DRUGS (12)
  1. CARBOPLATIN [Suspect]
     Active Substance: CARBOPLATIN
     Indication: Non-small cell lung cancer metastatic
     Dosage: UNK, Q3W
     Dates: start: 20250416, end: 20250517
  2. PEMETREXED [Suspect]
     Active Substance: PEMETREXED
     Indication: Non-small cell lung cancer metastatic
     Dosage: UNK, Q3W
     Dates: start: 20250416, end: 20250517
  3. DURVALUMAB [Suspect]
     Active Substance: DURVALUMAB
     Indication: Non-small cell lung cancer metastatic
     Dosage: UNK, Q3W
     Dates: start: 20250416, end: 20250517
  4. TREMELIMUMAB [Suspect]
     Active Substance: TREMELIMUMAB
     Indication: Non-small cell lung cancer metastatic
     Dosage: UNK, Q3W
     Dates: start: 20250416, end: 20250517
  5. AMLODIPINE BESYLATE [Concomitant]
     Active Substance: AMLODIPINE BESYLATE
     Indication: Prophylaxis
     Dosage: 10 MILLIGRAM, ONCE A DAY (10 MILLIGRAM, QD)
  6. CANDESARTAN [Concomitant]
     Active Substance: CANDESARTAN
     Indication: Prophylaxis
     Dosage: 32 MILLIGRAM, ONCE A DAY (16 MILLIGRAM, BID)
  7. METAMIZOL [Concomitant]
     Active Substance: METAMIZOLE SODIUM
     Indication: Prophylaxis
     Dosage: 1000 MILLIGRAM, ONCE A DAY (500 MILLIGRAM, BID)
  8. Nebivol [Concomitant]
     Indication: Premedication
     Dosage: 10 MILLIGRAM, ONCE A DAY (5 MILLIGRAM, BID)
  9. Nepresol [Concomitant]
     Indication: Premedication
     Dosage: 50 MILLIGRAM, ONCE A DAY (25 MILLIGRAM, BID)
  10. PANTOPRAZOLE SODIUM [Concomitant]
     Active Substance: PANTOPRAZOLE SODIUM
     Indication: Prophylaxis
     Dosage: 40 MILLIGRAM, ONCE A DAY (40 MILLIGRAM, QD)
  11. SIMVASTATIN [Concomitant]
     Active Substance: SIMVASTATIN
     Indication: Prophylaxis
     Dosage: 20 MILLIGRAM, ONCE A DAY (20 MILLIGRAM, QD)
  12. TAMSULOSIN [Concomitant]
     Active Substance: TAMSULOSIN
     Indication: Premedication
     Dosage: 0.4 MILLIGRAM, ONCE A DAY (0.4 MILLIGRAM, QD)

REACTIONS (3)
  - Clostridium test positive [Recovered/Resolved]
  - Anaemia [Not Recovered/Not Resolved]
  - Gamma-glutamyltransferase increased [Not Recovered/Not Resolved]

NARRATIVE: CASE EVENT DATE: 20250426
